FAERS Safety Report 9912624 (Version 1)
Quarter: 2014Q1

REPORT INFORMATION
  Report Type: Spontaneous
  Country: US (occurrence: None)
  Receive Date: 20140218
  Receipt Date: 20140218
  Transmission Date: 20141002
  Serious: Yes (Hospitalization)
  Sender: FDA-Public Use
  Company Number: None

PATIENT
  Age: 19 Year
  Sex: Female
  Weight: 86 kg

DRUGS (1)
  1. PEG-L-ASPARGINASE [Suspect]
     Dates: start: 20140119

REACTIONS (9)
  - Aphasia [None]
  - Activities of daily living impaired [None]
  - Grand mal convulsion [None]
  - Nystagmus [None]
  - Tachycardia [None]
  - Hypertension [None]
  - Haemorrhage intracranial [None]
  - Coagulopathy [None]
  - Platelet count decreased [None]
